FAERS Safety Report 7165436-7 (Version None)
Quarter: 2010Q4

REPORT INFORMATION
  Report Type: 
  Country: None (occurrence: None)
  Receive Date: 20101215
  Receipt Date: 20100115
  Transmission Date: 20110411
  Serious: No
  Sender: FDA-Public Use
  Company Number: US-AMGEN-TCS381285

PATIENT

DRUGS (2)
  1. ENBREL [Suspect]
     Indication: JUVENILE ARTHRITIS
     Dosage: .7 ML, QWK
     Route: 058
     Dates: start: 20091113
  2. METHOTREXATE [Concomitant]
     Dosage: 7.5 MG, QWK
     Route: 058

REACTIONS (2)
  - INJECTION SITE HAEMATOMA [None]
  - JUVENILE ARTHRITIS [None]
